FAERS Safety Report 5445838-7 (Version None)
Quarter: 2007Q3

REPORT INFORMATION
  Report Type: 
  Country: None (occurrence: None)
  Receive Date: 20070904
  Receipt Date: 20070814
  Transmission Date: 20080115
  Serious: Yes (Other)
  Sender: FDA-Public Use
  Company Number: GXKR2007CA07261

PATIENT
  Sex: Male

DRUGS (6)
  1. CICLOSPORIN SANDOZ (NGX)(CICLOSPORIN) UNKNOWN [Suspect]
     Indication: RENAL TRANSPLANT
     Dosage: 75 MG, BID, ORAL
     Route: 048
  2. ATENOLOL [Concomitant]
  3. TERAZOSIN HCL [Concomitant]
  4. ALLOPURINOL [Concomitant]
  5. PREDNISONE TAB [Concomitant]
  6. CRESTOR [Concomitant]

REACTIONS (6)
  - ANGINA PECTORIS [None]
  - BLOOD CREATININE INCREASED [None]
  - BLOOD PRESSURE INCREASED [None]
  - FLUID RETENTION [None]
  - NERVOUSNESS [None]
  - TREMOR [None]
